FAERS Safety Report 11505616 (Version 1)
Quarter: 2015Q3

REPORT INFORMATION
  Report Type: Spontaneous
  Country: US (occurrence: US)
  Receive Date: 20150915
  Receipt Date: 20150915
  Transmission Date: 20151125
  Serious: No
  Sender: FDA-Public Use
  Company Number: US-ROCHE-802400

PATIENT
  Age: 51 Year
  Sex: Female

DRUGS (3)
  1. RIBAVIRIN. [Concomitant]
     Active Substance: RIBAVIRIN
     Dosage: DOSE AND FREQUENCY UNKNOWN
     Route: 065
  2. PEGASYS [Suspect]
     Active Substance: PEGINTERFERON ALFA-2A
     Dosage: FREQUENCY: WEELLY AND START DATE: 3 WEEKS AGO
     Route: 058
  3. PEGASYS [Suspect]
     Active Substance: PEGINTERFERON ALFA-2A
     Indication: HEPATITIS C
     Dosage: FREQUENCY : WEEKLY AND START DATE:4-5 YEARS AGO
     Route: 058

REACTIONS (3)
  - Needle issue [Unknown]
  - Viral load increased [Unknown]
  - Malaise [Unknown]

NARRATIVE: CASE EVENT DATE: 20110908
